FAERS Safety Report 13598233 (Version 2)
Quarter: 2017Q4

REPORT INFORMATION
  Report Type: Spontaneous
  Country: KR (occurrence: KR)
  Receive Date: 20170531
  Receipt Date: 20171111
  Transmission Date: 20180320
  Serious: Yes (Hospitalization, Other)
  Sender: FDA-Public Use
  Company Number: KR-SA-2017SA086601

PATIENT
  Age: 75 Year
  Sex: Female

DRUGS (7)
  1. ENOXAPARIN SODIUM. [Suspect]
     Active Substance: ENOXAPARIN SODIUM
     Indication: ANTICOAGULANT THERAPY
     Route: 058
  2. ENOXAPARIN SODIUM. [Suspect]
     Active Substance: ENOXAPARIN SODIUM
     Indication: ANTICOAGULANT THERAPY
     Route: 065
  3. PREDNISOLONE. [Concomitant]
     Active Substance: PREDNISOLONE
     Indication: PEMPHIGOID
     Route: 065
  4. WARFARIN SODIUM. [Interacting]
     Active Substance: WARFARIN SODIUM
     Indication: ANTICOAGULANT THERAPY
     Route: 065
  5. METHOTREXATE. [Concomitant]
     Active Substance: METHOTREXATE
     Indication: PEMPHIGOID
     Route: 065
  6. VITAMIN K [Concomitant]
     Active Substance: PHYTONADIONE
     Indication: PROTHROMBIN LEVEL INCREASED
     Route: 065
  7. VALPROIC ACID. [Interacting]
     Active Substance: VALPROIC ACID
     Indication: GENERALISED TONIC-CLONIC SEIZURE
     Route: 065

REACTIONS (7)
  - Activated partial thromboplastin time prolonged [Unknown]
  - Dermatitis bullous [Recovered/Resolved]
  - Haemoglobin decreased [Unknown]
  - Haemorrhage [Recovered/Resolved]
  - Haematoma [Recovered/Resolved]
  - Prothrombin time prolonged [Recovered/Resolved]
  - Drug interaction [Unknown]
